FAERS Safety Report 7864629-0 (Version None)
Quarter: 2011Q4

REPORT INFORMATION
  Report Type: 
  Country: None (occurrence: None)
  Receive Date: 20111025
  Receipt Date: 20111017
  Transmission Date: 20120403
  Serious: Yes (Other)
  Sender: FDA-Public Use
  Company Number: CH-ACCORD-010973

PATIENT
  Age: 36 Year
  Sex: Male

DRUGS (1)
  1. FINASTERIDE [Suspect]
     Indication: ALOPECIA
     Dosage: 1.00-MG-1.0DAYS

REACTIONS (4)
  - INCORRECT DRUG ADMINISTRATION DURATION [None]
  - GYNAECOMASTIA [None]
  - SEMINOMA [None]
  - TESTIS CANCER [None]
